FAERS Safety Report 25284849 (Version 1)
Quarter: 2025Q2

REPORT INFORMATION
  Report Type: Spontaneous
  Country: JP (occurrence: JP)
  Receive Date: 20250508
  Receipt Date: 20250508
  Transmission Date: 20250716
  Serious: Yes (Hospitalization, Other)
  Sender: NOVARTIS
  Company Number: JP-002147023-NVSJ2025JP004969

PATIENT
  Sex: Male

DRUGS (1)
  1. ENTRESTO [Suspect]
     Active Substance: SACUBITRIL\VALSARTAN
     Indication: Cardiac failure chronic
     Route: 048

REACTIONS (8)
  - Chest discomfort [Unknown]
  - Abdominal discomfort [Unknown]
  - Hypophagia [Unknown]
  - Weight decreased [Unknown]
  - Decreased appetite [Unknown]
  - Oedema peripheral [Recovered/Resolved]
  - Renal impairment [Unknown]
  - Hepatic function abnormal [Unknown]
